FAERS Safety Report 4572557-1 (Version None)
Quarter: 2005Q1

REPORT INFORMATION
  Report Type: 
  Country: None (occurrence: None)
  Receive Date: 20050208
  Receipt Date: 20050127
  Transmission Date: 20050727
  Serious: Yes (Other)
  Sender: FDA-Public Use
  Company Number: US-JNJFOC-20050200110

PATIENT
  Sex: Female
  Weight: 72.58 kg

DRUGS (24)
  1. INFLIXIMAB [Suspect]
     Indication: RHEUMATOID ARTHRITIS
     Route: 042
  2. ARAVA [Concomitant]
  3. CALCIUM GLUCONATE [Concomitant]
  4. DARVON [Concomitant]
  5. FERROUS SULFATE TAB [Concomitant]
  6. FOLIC ACID [Concomitant]
  7. FOSAMAX [Concomitant]
  8. LORAZEPAM [Concomitant]
  9. METHOTREXATE [Concomitant]
  10. NEURONTIN [Concomitant]
  11. SYNTHROID [Concomitant]
  12. TRENTAL [Concomitant]
  13. NEXIUM [Concomitant]
  14. MULTI-VITAMIN [Concomitant]
  15. MULTI-VITAMIN [Concomitant]
  16. MULTI-VITAMIN [Concomitant]
  17. MULTI-VITAMIN [Concomitant]
  18. MULTI-VITAMIN [Concomitant]
  19. MULTI-VITAMIN [Concomitant]
  20. MULTI-VITAMIN [Concomitant]
  21. MULTI-VITAMIN [Concomitant]
  22. VITAMIN C [Concomitant]
  23. VITAMIN E [Concomitant]
  24. REQUIP [Concomitant]

REACTIONS (1)
  - BASAL CELL CARCINOMA [None]
